FAERS Safety Report 9377010 (Version 1)
Quarter: 2013Q3

REPORT INFORMATION
  Report Type: Spontaneous
  Country: JP (occurrence: JP)
  Receive Date: 20130701
  Receipt Date: 20130701
  Transmission Date: 20140515
  Serious: Yes (Death, Other)
  Sender: FDA-Public Use
  Company Number: JP-ROCHE-1242681

PATIENT
  Age: 73 Year
  Sex: Male

DRUGS (19)
  1. RITUXIMAB [Suspect]
     Indication: B-CELL LYMPHOMA
     Route: 042
     Dates: start: 20091110, end: 20091110
  2. RITUXIMAB [Suspect]
     Route: 042
     Dates: start: 20091117, end: 20091117
  3. ZEVALIN YTTRIUM [Suspect]
     Indication: B-CELL LYMPHOMA
     Dosage: 14.8 MBQ/KG
     Route: 042
     Dates: start: 20091117, end: 20091117
  4. ZEVALIN INDIUM [Suspect]
     Indication: B-CELL LYMPHOMA
     Dosage: 130 MBQ
     Route: 042
     Dates: start: 20091110, end: 20091110
  5. CYCLOPHOSPHAMIDE [Suspect]
     Indication: B-CELL LYMPHOMA
     Route: 065
  6. DOXORUBICIN HYDROCHLORIDE [Suspect]
     Indication: B-CELL LYMPHOMA
     Route: 065
  7. VINCRISTINE SULFATE [Suspect]
     Indication: B-CELL LYMPHOMA
     Route: 065
  8. PREDNISOLONE [Suspect]
     Indication: B-CELL LYMPHOMA
     Route: 065
  9. CLADRIBINE [Suspect]
     Indication: B-CELL LYMPHOMA
     Route: 065
  10. MITOXANTRONE HYDROCHLORIDE [Suspect]
     Indication: B-CELL LYMPHOMA
     Route: 065
  11. PIRARUBICIN HYDROCHLORIDE [Suspect]
     Indication: B-CELL LYMPHOMA
     Route: 065
  12. CARBOPLATIN [Suspect]
     Indication: B-CELL LYMPHOMA
     Route: 065
  13. ETOPOSIDE [Suspect]
     Indication: B-CELL LYMPHOMA
     Route: 065
  14. IFOSFAMIDE [Suspect]
     Indication: B-CELL LYMPHOMA
     Route: 065
  15. DEXAMETHASONE [Suspect]
     Indication: B-CELL LYMPHOMA
     Route: 065
  16. TAMSULOSIN [Concomitant]
     Indication: BENIGN PROSTATIC HYPERPLASIA
     Route: 048
     Dates: start: 20080328
  17. BLOPRESS [Concomitant]
     Indication: HYPERTENSION
     Route: 048
     Dates: start: 20080402
  18. ALLEGRA [Concomitant]
     Route: 048
     Dates: start: 20091110, end: 20091117
  19. CALONAL [Concomitant]
     Route: 048
     Dates: start: 20091110, end: 20091117

REACTIONS (1)
  - Myelodysplastic syndrome [Fatal]
